FAERS Safety Report 26068389 (Version 1)
Quarter: 2025Q4

REPORT INFORMATION
  Report Type: Spontaneous
  Country: AE (occurrence: AE)
  Receive Date: 20251120
  Receipt Date: 20251120
  Transmission Date: 20260119
  Serious: Yes (Other)
  Sender: GILEAD
  Company Number: AE-GILEAD-2025-0736886

PATIENT
  Age: 68 Year
  Sex: Female

DRUGS (2)
  1. LENACAPAVIR [Suspect]
     Active Substance: LENACAPAVIR
     Indication: HIV infection
     Dosage: UNK, EVERY 6 MONTHS
     Route: 058
  2. BIKTARVY [Concomitant]
     Active Substance: BICTEGRAVIR SODIUM\EMTRICITABINE\TENOFOVIR ALAFENAMIDE FUMARATE
     Indication: HIV antibody
     Dosage: UNK, EVERY DAY
     Route: 048

REACTIONS (2)
  - Cardiac failure congestive [Not Recovered/Not Resolved]
  - Injection site nodule [Not Recovered/Not Resolved]
